FAERS Safety Report 21909125 (Version 1)
Quarter: 2023Q1

REPORT INFORMATION
  Report Type: Spontaneous
  Country: US (occurrence: None)
  Receive Date: 20230124
  Receipt Date: 20230124
  Transmission Date: 20230418
  Serious: No
  Sender: FDA-Public Use
  Company Number: None

PATIENT
  Age: 47 Year
  Sex: Female
  Weight: 130.5 kg

DRUGS (8)
  1. LOSARTAN POTASSIUM [Suspect]
     Active Substance: LOSARTAN POTASSIUM
     Indication: Blood pressure increased
     Dates: start: 20230120, end: 20230122
  2. FLUNISOLIDE [Concomitant]
     Active Substance: FLUNISOLIDE
  3. SIMVASTATIN [Concomitant]
     Active Substance: SIMVASTATIN
  4. PROAIR DIGIHALER [Concomitant]
     Active Substance: ALBUTEROL SULFATE
  5. IBUPROFEN [Concomitant]
     Active Substance: IBUPROFEN
  6. multi-vitamins [Concomitant]
  7. tumeric powder [Concomitant]
  8. Beet Chews [Concomitant]

REACTIONS (1)
  - Vomiting [None]

NARRATIVE: CASE EVENT DATE: 20230121
